FAERS Safety Report 10432297 (Version 1)
Quarter: 2014Q3

REPORT INFORMATION
  Report Type: Spontaneous
  Country: US (occurrence: None)
  Receive Date: 20140904
  Receipt Date: 20140904
  Transmission Date: 20150326
  Serious: Yes (Other)
  Sender: FDA-Public Use
  Company Number: None

PATIENT
  Age: 62 Year
  Sex: Male

DRUGS (1)
  1. DULERA [Suspect]
     Active Substance: FORMOTEROL FUMARATE DIHYDRATE\MOMETASONE FUROATE
     Indication: ASTHMA
     Dosage: 2 PUFFS?TWICE DAILY?INHALATION
     Route: 055
     Dates: start: 20140801, end: 20140901

REACTIONS (3)
  - Drug effect decreased [None]
  - Underdose [None]
  - Device malfunction [None]

NARRATIVE: CASE EVENT DATE: 20140901
